FAERS Safety Report 15668516 (Version 2)
Quarter: 2018Q4

REPORT INFORMATION
  Report Type: Spontaneous
  Country: NL (occurrence: NL)
  Receive Date: 20181129
  Receipt Date: 20181211
  Transmission Date: 20190205
  Serious: Yes (Death)
  Sender: FDA-Public Use
  Company Number: NL-TEVA-2018-NL-981124

PATIENT
  Sex: Male

DRUGS (11)
  1. RISPERIDON 0,5 MG [Concomitant]
     Active Substance: RISPERIDONE
  2. ACENOCOUMAROL 1 MG TABLET [Concomitant]
  3. COLECALCIFEROL 800 IE TABLET [Concomitant]
  4. PANTOPRAZOL 20 MG TABLET MSR [Concomitant]
  5. PARACETAMOL 1000 MG ZETPIL [Concomitant]
  6. DERMOVATE 0.5 MG/G HYDROF CR [Concomitant]
     Dosage: 0.5MG/G
     Route: 065
  7. AMOXICILLINE/CLAVULAANZUUR TABLET, 500/125 MG (MILLIGRAM) [Suspect]
     Active Substance: AMOXICILLIN\CLAVULANATE POTASSIUM
     Indication: URINARY TRACT INFECTION
     Dosage: 3 DOSAGE FORMS DAILY; 500/125MG
     Route: 065
     Dates: start: 20181002
  8. PRIMPERAN ZETPIL 10 MG [Concomitant]
  9. NOVORAPID FLEXPEN 300 IE/3 ML [Concomitant]
     Dosage: 300IE/3ML
  10. PARACETAMOL 500 MG TABLET [Concomitant]
  11. METOPROLOL 25 MG TAB MGA SUCC [Concomitant]

REACTIONS (5)
  - Skin discolouration [Fatal]
  - Vasculitis [Fatal]
  - Somnolence [Unknown]
  - Haematoma [Fatal]
  - Lip swelling [Unknown]
